FAERS Safety Report 19451106 (Version 1)
Quarter: 2021Q2

REPORT INFORMATION
  Report Type: Spontaneous
  Country: US (occurrence: US)
  Receive Date: 20210623
  Receipt Date: 20210623
  Transmission Date: 20210717
  Serious: No
  Sender: FDA-Public Use
  Company Number: US-B.I. PHARMACEUTICALS,INC./RIDGEFIELD-2021-BI-111065

PATIENT
  Sex: Female

DRUGS (1)
  1. OFEV [Suspect]
     Active Substance: NINTEDANIB
     Indication: PRODUCT USED FOR UNKNOWN INDICATION
     Dosage: 1 (100 MG) CAPSULES PO BID
     Route: 048

REACTIONS (4)
  - Diarrhoea [Unknown]
  - Gastric disorder [Unknown]
  - Hand fracture [Unknown]
  - Fall [Unknown]
